FAERS Safety Report 24962137 (Version 1)
Quarter: 2025Q1

REPORT INFORMATION
  Report Type: Spontaneous
  Country: US (occurrence: US)
  Receive Date: 20250212
  Receipt Date: 20250212
  Transmission Date: 20250409
  Serious: Yes (Death, Other)
  Sender: ELI LILLY AND COMPANY
  Company Number: US-ELI_LILLY_AND_COMPANY-US202502004284

PATIENT
  Age: 28 Year
  Sex: Female

DRUGS (5)
  1. SELPERCATINIB [Suspect]
     Active Substance: SELPERCATINIB
     Indication: Lung adenocarcinoma
     Dosage: 160 MG, BID
     Route: 065
     Dates: start: 201804
  2. SELPERCATINIB [Suspect]
     Active Substance: SELPERCATINIB
     Dosage: 160 MG, BID
     Route: 065
     Dates: start: 202306
  3. TRAMETINIB [Suspect]
     Active Substance: TRAMETINIB
     Indication: Lung adenocarcinoma
     Dosage: 2 MG, DAILY
     Route: 065
     Dates: start: 202306
  4. TRAMETINIB [Suspect]
     Active Substance: TRAMETINIB
     Dosage: 1 UNK
     Route: 065
  5. TRETINOIN [Suspect]
     Active Substance: TRETINOIN
     Indication: Rash
     Route: 065

REACTIONS (10)
  - Cardiac arrest [Fatal]
  - Oesophageal stenosis [Unknown]
  - Oesophagobronchial fistula [Unknown]
  - Oesophageal rupture [Unknown]
  - Dysphagia [Unknown]
  - Malignant neoplasm progression [Unknown]
  - Paronychia [Recovering/Resolving]
  - Xeroderma [Unknown]
  - Dermatitis acneiform [Recovering/Resolving]
  - Diarrhoea [Unknown]
